FAERS Safety Report 8838037 (Version 2)
Quarter: 2012Q4

REPORT INFORMATION
  Report Type: 
  Country: US (occurrence: US)
  Receive Date: 20121012
  Receipt Date: 20121017
  Transmission Date: 20130627
  Serious: Yes (Hospitalization)
  Sender: FDA-Public Use
  Company Number: US-B.I. PHARMACEUTICALS,INC./RIDGEFIELD-2012-BP-24738BP

PATIENT
  Age: 77 None
  Sex: Male

DRUGS (11)
  1. PRADAXA [Suspect]
     Indication: ATRIAL FIBRILLATION
     Dosage: 300 mg
     Route: 048
     Dates: start: 201201, end: 201209
  2. ASPIRIN [Concomitant]
     Indication: ANTICOAGULANT THERAPY
  3. PANTOPRAZOLE [Concomitant]
     Dosage: 40 mg
     Route: 048
  4. METOPROLOL [Concomitant]
     Dosage: 12.5 mg
     Route: 048
  5. FINASTERIDE [Concomitant]
     Indication: BENIGN PROSTATIC HYPERPLASIA
     Dosage: 5 mg
     Route: 048
  6. ALLERGY PILL [Concomitant]
  7. IRON [Concomitant]
     Route: 048
  8. FOLIC ACID [Concomitant]
     Route: 048
  9. LOSARTIN [Concomitant]
     Route: 048
  10. LOVASTATIN [Concomitant]
     Indication: BLOOD CHOLESTEROL INCREASED
     Route: 048
  11. TAMSULOSIN [Concomitant]
     Route: 048

REACTIONS (2)
  - Anaemia [Recovered/Resolved]
  - Haemorrhage [Recovered/Resolved]
